FAERS Safety Report 8353788-1 (Version None)
Quarter: 2012Q2

REPORT INFORMATION
  Report Type: 
  Country: None (occurrence: None)
  Receive Date: 20120511
  Receipt Date: 20111117
  Transmission Date: 20120825
  Serious: No
  Sender: FDA-Public Use
  Company Number: US-GLAXOSMITHKLINE-A0953754A

PATIENT
  Age: 60 Year
  Sex: Female
  Weight: 68.2 kg

DRUGS (7)
  1. FISH OIL CAPSULES [Concomitant]
  2. SIMVASTATIN [Concomitant]
  3. TYKERB [Suspect]
     Indication: BREAST CANCER
     Dosage: 250MG SIX TIMES PER DAY
     Route: 048
     Dates: start: 20111110, end: 20111115
  4. ASPIRIN [Concomitant]
  5. FEMARA [Concomitant]
  6. VITAMIN D [Concomitant]
  7. FENOFIBRATE [Concomitant]

REACTIONS (5)
  - PRURITUS [None]
  - PAIN [None]
  - DRY SKIN [None]
  - RASH [None]
  - DEFORMITY [None]
